FAERS Safety Report 14480256 (Version 1)
Quarter: 2018Q1

REPORT INFORMATION
  Report Type: Spontaneous
  Country: US (occurrence: US)
  Receive Date: 20180201
  Receipt Date: 20180201
  Transmission Date: 20180509
  Serious: Yes (Other)
  Sender: FDA-Public Use
  Company Number: None

PATIENT

DRUGS (1)
  1. GADOTERIDOL [Suspect]
     Active Substance: GADOTERIDOL

REACTIONS (6)
  - Hypoaesthesia [None]
  - Mouth swelling [None]
  - Urticaria [None]
  - Flushing [None]
  - Contrast media reaction [None]
  - Nasal congestion [None]
